FAERS Safety Report 10726488 (Version 3)
Quarter: 2015Q1

REPORT INFORMATION
  Report Type: Spontaneous
  Country: JP (occurrence: JP)
  Receive Date: 20150121
  Receipt Date: 20150212
  Transmission Date: 20150721
  Serious: Yes (Hospitalization)
  Sender: FDA-Public Use
  Company Number: JP-ASTRAZENECA-2015SE05484

PATIENT
  Age: 654 Month
  Sex: Female
  Weight: 46 kg

DRUGS (8)
  1. NEXIUM [Suspect]
     Active Substance: ESOMEPRAZOLE MAGNESIUM
     Indication: GASTRIC MUCOSAL LESION
     Route: 048
     Dates: end: 20141210
  2. PREDNISOLONE. [Concomitant]
     Active Substance: PREDNISOLONE
     Indication: RHEUMATOID ARTHRITIS
     Route: 048
  3. PREDONINE [Concomitant]
     Active Substance: PREDNISOLONE\PREDNISOLONE ACETATE\PREDNISOLONE SODIUM SUCCINATE
     Indication: RHEUMATOID ARTHRITIS
     Route: 048
  4. FUROSEMIDE. [Concomitant]
     Active Substance: FUROSEMIDE
     Indication: CHRONIC KIDNEY DISEASE
     Route: 048
  5. ALFAROL [Concomitant]
     Active Substance: ALFACALCIDOL
     Indication: HYPERPARATHYROIDISM SECONDARY
     Route: 048
  6. FOSAMAX [Concomitant]
     Active Substance: ALENDRONATE SODIUM
     Indication: HYPERPARATHYROIDISM SECONDARY
     Route: 048
  7. FUROSEMIDE. [Concomitant]
     Active Substance: FUROSEMIDE
     Indication: CHRONIC KIDNEY DISEASE
     Route: 048
  8. PROMAC [Concomitant]
     Active Substance: NITROFURANTOIN
     Indication: GASTRIC MUCOSAL LESION
     Route: 048

REACTIONS (6)
  - General physical health deterioration [Recovered/Resolved]
  - Colitis microscopic [Recovering/Resolving]
  - Refractory cytopenia with unilineage dysplasia [Recovered/Resolved]
  - Gastrointestinal amyloidosis [Unknown]
  - Renal impairment [Not Recovered/Not Resolved]
  - Gastrointestinal ulcer [Unknown]

NARRATIVE: CASE EVENT DATE: 201301
